FAERS Safety Report 9863528 (Version 4)
Quarter: 2014Q2

REPORT INFORMATION
  Report Type: Report from Study
  Country: US (occurrence: US)
  Receive Date: 20140203
  Receipt Date: 20140428
  Transmission Date: 20141212
  Serious: Yes (Death, Hospitalization)
  Sender: FDA-Public Use
  Company Number: US-ACTELION-A-NJ2014-94263

PATIENT
  Age: 75 Year
  Sex: Female

DRUGS (3)
  1. TRACLEER [Suspect]
     Indication: PULMONARY HYPERTENSION
     Dosage: 62.5 MG, BID
     Route: 048
     Dates: start: 20130919, end: 20140301
  2. ADCIRCA [Concomitant]
  3. DIGOXIN [Concomitant]

REACTIONS (6)
  - Pneumonia [Fatal]
  - Chronic obstructive pulmonary disease [Unknown]
  - Hip fracture [Unknown]
  - Fall [Unknown]
  - Pulmonary arterial hypertension [Unknown]
  - Condition aggravated [Unknown]
